FAERS Safety Report 9667356 (Version 1)
Quarter: 2013Q4

REPORT INFORMATION
  Report Type: Spontaneous
  Country: US (occurrence: US)
  Receive Date: 20131104
  Receipt Date: 20131104
  Transmission Date: 20140711
  Serious: No
  Sender: FDA-Public Use
  Company Number: US-BIOGENIDEC-2013BI090948

PATIENT
  Age: 50 Year
  Sex: Female

DRUGS (1)
  1. TECFIDERA [Suspect]
     Indication: RELAPSING-REMITTING MULTIPLE SCLEROSIS
     Dates: start: 20130520

REACTIONS (5)
  - Back pain [Recovered/Resolved]
  - Tremor [Recovered/Resolved]
  - Chills [Unknown]
  - Feeling cold [Unknown]
  - Flushing [Recovered/Resolved]
